FAERS Safety Report 7418341-2 (Version None)
Quarter: 2011Q2

REPORT INFORMATION
  Report Type: 
  Country: None (occurrence: None)
  Receive Date: 20110415
  Receipt Date: 20110408
  Transmission Date: 20111010
  Serious: Yes (Death)
  Sender: FDA-Public Use
  Company Number: A0921942A

PATIENT
  Age: 68 Year
  Sex: Male

DRUGS (10)
  1. FUROSEMIDE [Concomitant]
     Route: 065
  2. PANTOPRAZOLE [Concomitant]
     Route: 065
  3. MILRINONE [Concomitant]
     Route: 065
  4. FLOLAN [Suspect]
     Route: 055
  5. CEFAZOLIN [Concomitant]
     Route: 065
  6. MORPHINE [Concomitant]
     Route: 065
  7. NITROGLYCERIN [Concomitant]
     Route: 065
  8. PROPOFOL [Concomitant]
     Route: 065
  9. ASPIRIN [Concomitant]
     Route: 065
  10. NOREPINEPHRINE BITARTRATE [Concomitant]
     Route: 065

REACTIONS (2)
  - HYPOTENSION [None]
  - OFF LABEL USE [None]
